FAERS Safety Report 23966372 (Version 1)
Quarter: 2024Q2

REPORT INFORMATION
  Report Type: Other
  Country: US (occurrence: US)
  Receive Date: 20240612
  Receipt Date: 20240612
  Transmission Date: 20240716
  Serious: Yes (Hospitalization)
  Sender: FDA-Public Use
  Company Number: US-WES Pharma Inc-2158037

PATIENT
  Age: 62 Year
  Sex: Male

DRUGS (2)
  1. OXYCODONE HYDROCHLORIDE [Suspect]
     Active Substance: OXYCODONE HYDROCHLORIDE
     Indication: Back pain
     Route: 048
  2. GLIPIZIDE [Suspect]
     Active Substance: GLIPIZIDE
     Route: 048

REACTIONS (3)
  - Hypoglycaemia [Recovered/Resolved]
  - Counterfeit product administered [Unknown]
  - Intentional product misuse [Unknown]
